FAERS Safety Report 5647917-8 (Version None)
Quarter: 2008Q1

REPORT INFORMATION
  Report Type: 
  Country: None (occurrence: None)
  Receive Date: 20080228
  Receipt Date: 20080219
  Transmission Date: 20080703
  Serious: Yes (Other)
  Sender: FDA-Public Use
  Company Number: 340005J08USA

PATIENT
  Age: 34 Year
  Sex: Female

DRUGS (1)
  1. OVIDREL [Suspect]
     Indication: INFERTILITY FEMALE
     Dosage: 250 MCG,

REACTIONS (2)
  - ANAPHYLACTIC REACTION [None]
  - HYPERSENSITIVITY [None]
